FAERS Safety Report 6758754-5 (Version None)
Quarter: 2010Q2

REPORT INFORMATION
  Report Type: 
  Country: None (occurrence: None)
  Receive Date: 20100602
  Receipt Date: 20100521
  Transmission Date: 20101027
  Serious: Yes (Life-Threatening, Hospitalization, Other)
  Sender: FDA-Public Use
  Company Number: IPC201005-000141

PATIENT
  Age: 83 Year
  Sex: Female

DRUGS (4)
  1. METFORMIN HCL [Suspect]
     Indication: DIABETES MELLITUS
     Dosage: 3000 MG, 3 IN 1 D
  2. HYDROCHLOROTHIAZIDE [Suspect]
     Dosage: 100 MG, 4 IN 1 D
  3. IRBESARTAN [Suspect]
     Dosage: 1200 MG, 4 IN 1 D
  4. ASPIRIN [Suspect]
     Dosage: 300 MG, 4 IN 1 D

REACTIONS (13)
  - BLOOD PRESSURE DECREASED [None]
  - COLD SWEAT [None]
  - CONFUSIONAL STATE [None]
  - DEHYDRATION [None]
  - DIARRHOEA [None]
  - DISORIENTATION [None]
  - HEART RATE INCREASED [None]
  - HYPOXIA [None]
  - LACTIC ACIDOSIS [None]
  - PNEUMONIA [None]
  - PROTHROMBIN TIME PROLONGED [None]
  - RENAL FAILURE ACUTE [None]
  - RESPIRATORY DISTRESS [None]
